FAERS Safety Report 9242020 (Version 1)
Quarter: 2013Q2

REPORT INFORMATION
  Report Type: Spontaneous
  Country: CN (occurrence: CN)
  Receive Date: 20130419
  Receipt Date: 20130419
  Transmission Date: 20140414
  Serious: Yes (Death, Life-Threatening)
  Sender: FDA-Public Use
  Company Number: CN-JNJFOC-20130410264

PATIENT
  Sex: 0

DRUGS (3)
  1. ITRACONAZOLE [Suspect]
     Indication: ANTIFUNGAL PROPHYLAXIS
     Route: 042
  2. CYCLOSPORINE A [Interacting]
     Indication: TRANSPLANT
     Route: 042
  3. CYCLOSPORINE A [Interacting]
     Indication: TRANSPLANT
     Route: 042

REACTIONS (3)
  - Idiopathic pneumonia syndrome [Fatal]
  - Acute graft versus host disease in skin [Fatal]
  - Drug interaction [Fatal]
